FAERS Safety Report 22201536 (Version 1)
Quarter: 2023Q2

REPORT INFORMATION
  Report Type: Report from Study
  Country: KW (occurrence: KW)
  Receive Date: 20230412
  Receipt Date: 20230412
  Transmission Date: 20230721
  Serious: Yes (Other)
  Sender: FDA-Public Use
  Company Number: KW-002147023-NVSC2023KW081653

PATIENT
  Age: 41 Year
  Sex: Female

DRUGS (4)
  1. KISQALI [Suspect]
     Active Substance: RIBOCICLIB
     Indication: Breast cancer metastatic
     Dosage: 600 MG, QD (3 MONTHS AGO)
     Route: 048
     Dates: start: 2022
  2. FASLODEX [Concomitant]
     Active Substance: FULVESTRANT
     Indication: Product used for unknown indication
     Dosage: UNK (3 MONTHS AGO)
     Route: 065
     Dates: start: 2022
  3. ZOLADEX [Concomitant]
     Active Substance: GOSERELIN ACETATE
     Indication: Product used for unknown indication
     Dosage: UNK (3 MONTHS AGO)
     Route: 065
     Dates: start: 2022
  4. XGEVA [Concomitant]
     Active Substance: DENOSUMAB
     Indication: Product used for unknown indication
     Dosage: UNK (3 MONTHS AGO)
     Route: 065
     Dates: start: 2022

REACTIONS (4)
  - Metastases to bone [Unknown]
  - Pulmonary oedema [Recovering/Resolving]
  - Urinary tract infection [Not Recovered/Not Resolved]
  - Dysuria [Not Recovered/Not Resolved]

NARRATIVE: CASE EVENT DATE: 20230402
